FAERS Safety Report 5422147-3 (Version None)
Quarter: 2007Q3

REPORT INFORMATION
  Report Type: 
  Country: None (occurrence: None)
  Receive Date: 20070821
  Receipt Date: 20070821
  Transmission Date: 20080115
  Serious: No
  Sender: FDA-Public Use
  Company Number: None

PATIENT
  Sex: Male
  Weight: 76.2043 kg

DRUGS (1)
  1. ARTICAINE [Suspect]
     Indication: ENDODONTIC PROCEDURE
     Dosage: ONE DOSE

REACTIONS (5)
  - GLOSSODYNIA [None]
  - HYPOAESTHESIA ORAL [None]
  - PARAESTHESIA ORAL [None]
  - POST PROCEDURAL COMPLICATION [None]
  - SWOLLEN TONGUE [None]
